FAERS Safety Report 9657422 (Version 1)
Quarter: 2013Q4

REPORT INFORMATION
  Report Type: Spontaneous
  Country: US (occurrence: US)
  Receive Date: 20131030
  Receipt Date: 20131030
  Transmission Date: 20140711
  Serious: Yes (Hospitalization, Other)
  Sender: FDA-Public Use
  Company Number: US-NAPPMUNDI-USA-2011-0076402

PATIENT
  Age: 3 Day
  Sex: Female
  Weight: 3.27 kg

DRUGS (3)
  1. OXYCONTIN TABLETS [Suspect]
     Indication: FOETAL EXPOSURE DURING PREGNANCY
  2. BUPRENORPHINE (SIMILAR TO NDA 21-306) [Suspect]
     Indication: FOETAL EXPOSURE DURING PREGNANCY
  3. BUPRENORPHINE [Suspect]
     Indication: FOETAL EXPOSURE DURING PREGNANCY
     Dosage: UNK
     Dates: start: 2010

REACTIONS (7)
  - Drug withdrawal syndrome neonatal [Recovering/Resolving]
  - Foetal exposure during pregnancy [Recovering/Resolving]
  - Feeding disorder neonatal [Recovering/Resolving]
  - Infantile spitting up [Recovering/Resolving]
  - Somnolence neonatal [Recovering/Resolving]
  - Crying [Recovering/Resolving]
  - Muscle spasms [Recovering/Resolving]
